FAERS Safety Report 11754557 (Version 2)
Quarter: 2015Q4

REPORT INFORMATION
  Report Type: Spontaneous
  Country: PT (occurrence: PT)
  Receive Date: 20151119
  Receipt Date: 20151218
  Transmission Date: 20160304
  Serious: Yes (Hospitalization, Other)
  Sender: FDA-Public Use
  Company Number: PT-BRISTOL-MYERS SQUIBB COMPANY-BMS-2015-078726

PATIENT
  Age: 42 Year
  Sex: Female
  Weight: 58 kg

DRUGS (7)
  1. ELIQUIS [Suspect]
     Active Substance: APIXABAN
     Indication: DEEP VEIN THROMBOSIS
  2. TOPIRAMATO [Concomitant]
     Active Substance: TOPIRAMATE
     Indication: MIGRAINE
     Route: 065
  3. ADT [Concomitant]
     Active Substance: AMITRIPTYLINE HYDROCHLORIDE
     Indication: MIGRAINE
     Route: 065
  4. ORAL CONTRACEPTIVE NOS [Suspect]
     Active Substance: UNSPECIFIED INGREDIENT
     Indication: CONTRACEPTION
     Route: 065
  5. TOPIRAMATO [Concomitant]
     Active Substance: TOPIRAMATE
     Route: 065
  6. ADT [Concomitant]
     Active Substance: AMITRIPTYLINE HYDROCHLORIDE
     Route: 065
  7. ELIQUIS [Suspect]
     Active Substance: APIXABAN
     Indication: EMBOLISM VENOUS
     Dosage: 10 MG, QD
     Route: 048
     Dates: start: 20150930, end: 20151005

REACTIONS (8)
  - Pulmonary embolism [Recovered/Resolved]
  - Deep vein thrombosis [Recovering/Resolving]
  - Chest pain [Recovered/Resolved]
  - Pleuritic pain [Recovered/Resolved]
  - Drug ineffective [Recovered/Resolved]
  - Palpitations [Recovered/Resolved]
  - Tachypnoea [Recovered/Resolved]
  - Fatigue [Recovered/Resolved]

NARRATIVE: CASE EVENT DATE: 201509
